FAERS Safety Report 23953526 (Version 7)
Quarter: 2024Q3

REPORT INFORMATION
  Report Type: Report from Study
  Country: BR (occurrence: BR)
  Receive Date: 20240608
  Receipt Date: 20240813
  Transmission Date: 20241016
  Serious: Yes (Death, Other)
  Sender: NOVARTIS
  Company Number: BR-002147023-NVSC2024BR089634

PATIENT
  Age: 62 Year
  Sex: Female

DRUGS (2)
  1. KISQALI [Suspect]
     Active Substance: RIBOCICLIB
     Indication: Product used for unknown indication
     Dosage: UNK
     Route: 065
  2. DIPYRONE [Concomitant]
     Active Substance: DIPYRONE
     Indication: Product used for unknown indication
     Dosage: UNK
     Route: 065

REACTIONS (35)
  - Respiratory failure [Fatal]
  - Breast cancer metastatic [Fatal]
  - Malignant neoplasm progression [Fatal]
  - Metastases to central nervous system [Fatal]
  - Cerebrovascular accident [Recovered/Resolved]
  - Syncope [Recovered/Resolved]
  - Metastases to bone [Unknown]
  - Brain oedema [Recovered/Resolved]
  - Cerebrovascular accident [Unknown]
  - Brain neoplasm [Unknown]
  - Malaise [Recovered/Resolved]
  - Drooling [Unknown]
  - Fall [Unknown]
  - Muscle spasms [Unknown]
  - Grip strength decreased [Unknown]
  - Sensory loss [Unknown]
  - Headache [Unknown]
  - Excessive eye blinking [Unknown]
  - Speech disorder [Unknown]
  - Feeling abnormal [Unknown]
  - Facial asymmetry [Recovered/Resolved]
  - Gait inability [Unknown]
  - Memory impairment [Unknown]
  - Intraocular pressure increased [Unknown]
  - Feeding disorder [Recovered/Resolved]
  - Vomiting [Recovered/Resolved]
  - Fatigue [Recovered/Resolved]
  - Pain [Recovered/Resolved]
  - Mobility decreased [Recovered/Resolved]
  - Malaise [Unknown]
  - Gait disturbance [Recovering/Resolving]
  - Feeding disorder [Recovering/Resolving]
  - Vomiting [Unknown]
  - Swelling [Unknown]
  - Central nervous system lesion [Unknown]

NARRATIVE: CASE EVENT DATE: 20240419
